FAERS Safety Report 21743918 (Version 5)
Quarter: 2025Q1

REPORT INFORMATION
  Report Type: Report from Study
  Country: CA (occurrence: CA)
  Receive Date: 20221217
  Receipt Date: 20250212
  Transmission Date: 20250408
  Serious: Yes (Other)
  Sender: TAKEDA
  Company Number: CA-TAKEDA-2022TUS032018

PATIENT
  Age: 65 Year
  Sex: Female

DRUGS (14)
  1. VEDOLIZUMAB [Suspect]
     Active Substance: VEDOLIZUMAB
     Indication: Crohn^s disease
  2. VEDOLIZUMAB [Suspect]
     Active Substance: VEDOLIZUMAB
  3. VEDOLIZUMAB [Suspect]
     Active Substance: VEDOLIZUMAB
  4. VEDOLIZUMAB [Suspect]
     Active Substance: VEDOLIZUMAB
  5. VEDOLIZUMAB [Suspect]
     Active Substance: VEDOLIZUMAB
  6. VEDOLIZUMAB [Suspect]
     Active Substance: VEDOLIZUMAB
  7. VEDOLIZUMAB [Suspect]
     Active Substance: VEDOLIZUMAB
  8. VEDOLIZUMAB [Suspect]
     Active Substance: VEDOLIZUMAB
  9. VEDOLIZUMAB [Suspect]
     Active Substance: VEDOLIZUMAB
  10. DEXILANT [Suspect]
     Active Substance: DEXLANSOPRAZOLE
     Indication: Product used for unknown indication
  11. PREDNISONE [Concomitant]
     Active Substance: PREDNISONE
  12. Salofalk [Concomitant]
  13. CITALOPRAM [Concomitant]
     Active Substance: CITALOPRAM
  14. CORTISONE [Concomitant]
     Active Substance: CORTISONE

REACTIONS (17)
  - Hypoaesthesia oral [Recovered/Resolved]
  - Paraesthesia oral [Recovered/Resolved]
  - Blood pressure increased [Recovered/Resolved]
  - Nausea [Recovered/Resolved]
  - Pneumonia [Recovered/Resolved]
  - Feeling hot [Recovered/Resolved]
  - Cardiac murmur [Not Recovered/Not Resolved]
  - Palpitations [Not Recovered/Not Resolved]
  - Paraesthesia [Recovered/Resolved]
  - Tremor [Unknown]
  - Chest discomfort [Recovering/Resolving]
  - Hypoaesthesia [Recovered/Resolved]
  - COVID-19 [Unknown]
  - Hyperhidrosis [Unknown]
  - Chills [Unknown]
  - Arthralgia [Unknown]
  - Nasopharyngitis [Recovered/Resolved]

NARRATIVE: CASE EVENT DATE: 20220824
